FAERS Safety Report 17584601 (Version 1)
Quarter: 2020Q1

REPORT INFORMATION
  Report Type: Spontaneous
  Country: US (occurrence: US)
  Receive Date: 20200324
  Receipt Date: 20200324
  Transmission Date: 20200409
  Serious: No
  Sender: FDA-Public Use
  Company Number: None

PATIENT
  Sex: Female

DRUGS (1)
  1. XELJANZ [Suspect]
     Active Substance: TOFACITINIB CITRATE
     Indication: PSORIATIC ARTHROPATHY
     Route: 048
     Dates: start: 20190701

REACTIONS (6)
  - Cough [None]
  - Therapy cessation [None]
  - Pyrexia [None]
  - Malaise [None]
  - Drug ineffective [None]
  - Blood cholesterol increased [None]
